FAERS Safety Report 20779342 (Version 1)
Quarter: 2022Q2

REPORT INFORMATION
  Report Type: Spontaneous
  Country: US (occurrence: None)
  Receive Date: 20220503
  Receipt Date: 20220503
  Transmission Date: 20220721
  Serious: No
  Sender: FDA-Public Use
  Company Number: None

PATIENT
  Age: 18 Month
  Sex: Female
  Weight: 8.75 kg

DRUGS (4)
  1. GATTEX [Suspect]
     Active Substance: TEDUGLUTIDE\WATER
     Indication: Gastrointestinal disorder
     Dosage: FREQUENCY : DAILY;?
     Route: 058
  2. URSODIOL [Concomitant]
     Active Substance: URSODIOL
  3. OMEPRAZOLE [Concomitant]
     Active Substance: OMEPRAZOLE
  4. SODIUM BICARBONATE [Concomitant]
     Active Substance: SODIUM BICARBONATE

REACTIONS (1)
  - Injection site haemorrhage [None]

NARRATIVE: CASE EVENT DATE: 20220503
